FAERS Safety Report 8580173-X (Version None)
Quarter: 2012Q3

REPORT INFORMATION
  Report Type: 
  Country: None (occurrence: None)
  Receive Date: 20120808
  Receipt Date: 20120803
  Transmission Date: 20120928
  Serious: Yes (Other)
  Sender: FDA-Public Use
  Company Number: US-ROXANE LABORATORIES, INC.-2012-RO-01643RO

PATIENT
  Age: 57 Year
  Sex: Male

DRUGS (2)
  1. HYDROMORPHONE HYDROCHLORIDE [Suspect]
     Indication: CANCER PAIN
     Route: 042
  2. METHADONE HYDROCHLORIDE [Suspect]
     Dosage: 300 MG

REACTIONS (3)
  - NEUROTOXICITY [None]
  - METASTASES TO BONE [None]
  - FEMORAL NECK FRACTURE [None]
